FAERS Safety Report 10053459 (Version 2)
Quarter: 2014Q2

REPORT INFORMATION
  Report Type: Report from Study
  Country: BR (occurrence: BR)
  Receive Date: 20140402
  Receipt Date: 20140429
  Transmission Date: 20141212
  Serious: No
  Sender: FDA-Public Use
  Company Number: PHHY2014BR038348

PATIENT
  Sex: Female
  Weight: 55 kg

DRUGS (4)
  1. ACLASTA [Suspect]
     Indication: OSTEOPOROSIS
     Dosage: UNK
     Route: 042
  2. ACLASTA [Suspect]
     Dosage: UNK
     Route: 042
     Dates: start: 2012
  3. OSCAL [Concomitant]
     Indication: OSTEOPOROSIS
     Dosage: 1 DF,DAILY
     Route: 048
  4. DIOVAN [Concomitant]
     Indication: HYPERTENSION
     Dosage: 0.5 DF (OF 360 MG), DAILY
     Route: 048

REACTIONS (1)
  - Pain [Unknown]
